FAERS Safety Report 23770048 (Version 3)
Quarter: 2024Q2

REPORT INFORMATION
  Report Type: Spontaneous
  Country: JP (occurrence: None)
  Receive Date: 20240422
  Receipt Date: 20240523
  Transmission Date: 20240716
  Serious: Yes (Death)
  Sender: FDA-Public Use
  Company Number: 2024A094183

PATIENT
  Age: 91 Year
  Sex: Female
  Weight: 51 kg

DRUGS (10)
  1. ONDEXXYA [Suspect]
     Active Substance: ANDEXANET ALFA
     Indication: Cerebral haemorrhage
     Dosage: BOLUS800.0MG UNKNOWN
     Route: 042
     Dates: start: 20240331, end: 20240331
  2. ONDEXXYA [Suspect]
     Active Substance: ANDEXANET ALFA
     Indication: Cerebral haemorrhage
     Dosage: CONTINUOUS ADMINISTRATION960.0MG UNKNOWN
     Route: 042
     Dates: start: 20240331, end: 20240331
  3. TRANEXAMIC ACID [Suspect]
     Active Substance: TRANEXAMIC ACID
     Route: 042
     Dates: start: 20240331, end: 20240331
  4. CARBAZOCHROME SODIUM SULFONATE [Suspect]
     Active Substance: CARBAZOCHROME SODIUM SULFONATE
     Indication: Cerebral haemorrhage
     Route: 042
     Dates: start: 20240331, end: 20240331
  5. AMLODIPINE [Concomitant]
     Active Substance: AMLODIPINE BESYLATE
     Indication: Hypertension
     Route: 048
     Dates: end: 20240331
  6. ELIQUIS [Concomitant]
     Active Substance: APIXABAN
     Indication: Atrial fibrillation
     Route: 048
     Dates: end: 20240331
  7. OLMESARTAN MEDOXOMIL [Concomitant]
     Active Substance: OLMESARTAN MEDOXOMIL
     Indication: Hypertension
     Route: 048
     Dates: end: 20240331
  8. NICARDIPINE HYDROCHLORIDE [Concomitant]
     Active Substance: NICARDIPINE HYDROCHLORIDE
     Indication: Cerebral haemorrhage
     Dosage: 3 MG/H, CONTINUOUS ADMINISTRATION
     Route: 042
     Dates: start: 20240331, end: 20240331
  9. SODIUM CHLORIDE [Concomitant]
     Active Substance: SODIUM CHLORIDE
     Indication: Cerebral haemorrhage
     Dosage: DOSE UNKNOWN
     Dates: start: 20240331
  10. GASTER [Concomitant]
     Active Substance: FAMOTIDINE
     Indication: Cerebral haemorrhage
     Route: 042
     Dates: start: 20240331, end: 20240331

REACTIONS (2)
  - Cerebral infarction [Fatal]
  - Blood pressure decreased [Fatal]

NARRATIVE: CASE EVENT DATE: 20240331
